FAERS Safety Report 6920894-5 (Version None)
Quarter: 2010Q3

REPORT INFORMATION
  Report Type: 
  Country: None (occurrence: None)
  Receive Date: 20100812
  Receipt Date: 20100806
  Transmission Date: 20110219
  Serious: Yes (Hospitalization, Other)
  Sender: FDA-Public Use
  Company Number: US-ASTRAZENECA-2010SE36905

PATIENT
  Sex: Female

DRUGS (6)
  1. SEROQUEL XR [Suspect]
     Indication: BIPOLAR I DISORDER
     Route: 048
     Dates: start: 20060101
  2. SEROQUEL XR [Suspect]
     Route: 048
     Dates: start: 20090101
  3. LEVOTHYROXINE [Concomitant]
  4. LITHIUM [Concomitant]
  5. KLONOPIN [Concomitant]
  6. WELLBUTRIN XL [Concomitant]

REACTIONS (4)
  - B-CELL SMALL LYMPHOCYTIC LYMPHOMA [None]
  - CHRONIC LYMPHOCYTIC LEUKAEMIA [None]
  - SPLENECTOMY [None]
  - WEIGHT INCREASED [None]
